FAERS Safety Report 8433334-4 (Version None)
Quarter: 2012Q2

REPORT INFORMATION
  Report Type: 
  Country: None (occurrence: None)
  Receive Date: 20120613
  Receipt Date: 20120606
  Transmission Date: 20120825
  Serious: Yes (Other)
  Sender: FDA-Public Use
  Company Number: US-PFIZER INC-2012136544

PATIENT
  Sex: Male

DRUGS (1)
  1. LIPITOR [Suspect]
     Dosage: UNK

REACTIONS (5)
  - THERAPEUTIC RESPONSE UNEXPECTED [None]
  - ARTHRALGIA [None]
  - COMPUTERISED TOMOGRAM ABDOMEN [None]
  - MYALGIA [None]
  - COLON CANCER [None]
